FAERS Safety Report 10308667 (Version 1)
Quarter: 2014Q3

REPORT INFORMATION
  Report Type: Spontaneous
  Country: US (occurrence: US)
  Receive Date: 20140716
  Receipt Date: 20140716
  Transmission Date: 20150326
  Serious: Yes (Hospitalization)
  Sender: FDA-Public Use
  Company Number: US-BRISTOL-MYERS SQUIBB COMPANY-21147145

PATIENT
  Age: 62 Year
  Sex: Female

DRUGS (10)
  1. PHENERGAN [Concomitant]
     Active Substance: PROMETHAZINE HYDROCHLORIDE
     Route: 042
  2. LOVENOX [Concomitant]
     Active Substance: ENOXAPARIN SODIUM
     Route: 058
  3. BYETTA [Suspect]
     Active Substance: EXENATIDE
     Dosage: AUG-2007
     Dates: start: 20070223
  4. INSULIN [Concomitant]
     Active Substance: INSULIN NOS
  5. ONDANSETRON [Concomitant]
     Active Substance: ONDANSETRON
     Route: 042
  6. TRAMADOL [Concomitant]
     Active Substance: TRAMADOL
  7. VICTOZA [Suspect]
     Active Substance: LIRAGLUTIDE
     Dosage: DEC-2012
     Dates: start: 20120323
  8. FENTANYL. [Concomitant]
     Active Substance: FENTANYL
  9. MEGESTROL [Concomitant]
     Active Substance: MEGESTROL
  10. SENOKOT [Concomitant]
     Active Substance: SENNOSIDES

REACTIONS (1)
  - Pancreatic carcinoma metastatic [Unknown]

NARRATIVE: CASE EVENT DATE: 20130207
